FAERS Safety Report 4645899-9 (Version None)
Quarter: 2005Q2

REPORT INFORMATION
  Report Type: 
  Country: None (occurrence: None)
  Receive Date: 20050427
  Receipt Date: 20050415
  Transmission Date: 20051028
  Serious: Yes (Death, Hospitalization)
  Sender: FDA-Public Use
  Company Number: FR-BRISTOL-MYERS SQUIBB COMPANY-12943312

PATIENT
  Age: 73 Year
  Sex: Male

DRUGS (7)
  1. ENDOXAN [Suspect]
     Indication: HODGKIN'S DISEASE
     Route: 042
     Dates: start: 20041206, end: 20041206
  2. ETOPOSIDE [Suspect]
     Indication: HODGKIN'S DISEASE
     Route: 042
     Dates: start: 20041206, end: 20041206
  3. DOXORUBICIN [Suspect]
     Indication: HODGKIN'S DISEASE
     Route: 042
     Dates: start: 20041206, end: 20041206
  4. BLEOMYCIN [Suspect]
     Indication: HODGKIN'S DISEASE
     Route: 042
     Dates: start: 20041213, end: 20041213
  5. NATULAN [Suspect]
     Indication: HODGKIN'S DISEASE
     Route: 042
     Dates: start: 20041206, end: 20041213
  6. PREDNISONE [Concomitant]
     Dates: start: 20041206, end: 20041219
  7. LENOGRASTIM [Concomitant]
     Dates: start: 20041221, end: 20041223

REACTIONS (8)
  - CYTOMEGALOVIRUS INFECTION [None]
  - DIARRHOEA [None]
  - INTERSTITIAL LUNG DISEASE [None]
  - PNEUMOCYSTIS JIROVECI PNEUMONIA [None]
  - PROCTALGIA [None]
  - PULMONARY FIBROSIS [None]
  - SEPSIS [None]
  - THROMBOCYTOPENIA [None]
